FAERS Safety Report 8263484-7 (Version None)
Quarter: 2012Q2

REPORT INFORMATION
  Report Type: 
  Country: None (occurrence: None)
  Receive Date: 20120405
  Receipt Date: 20120330
  Transmission Date: 20120825
  Serious: Yes (Hospitalization, Other)
  Sender: FDA-Public Use
  Company Number: US-BAYER-2011-085662

PATIENT
  Age: 55 Year
  Sex: Female
  Weight: 63.492 kg

DRUGS (6)
  1. CIPROFLOXACIN HCL [Concomitant]
     Indication: URINARY TRACT INFECTION
     Dosage: 500 MG, BID
     Route: 048
     Dates: start: 20110414
  2. IMITREX [Concomitant]
  3. SYNTHROID [Concomitant]
     Indication: THYROID CANCER
     Dosage: UNK UNK, QD
     Route: 048
  4. ADVAIR DISKUS 100/50 [Concomitant]
     Indication: ASTHMA
     Dosage: UNK
  5. PROVENTIL [Concomitant]
     Indication: ASTHMA
     Dosage: UNK
  6. YASMIN [Suspect]
     Dosage: UNK
     Route: 048
     Dates: start: 20040901, end: 20060101

REACTIONS (6)
  - CHOLECYSTITIS CHRONIC [None]
  - PAIN [None]
  - EMOTIONAL DISTRESS [None]
  - PSYCHOLOGICAL TRAUMA [None]
  - GALLBLADDER DISORDER [None]
  - ANXIETY [None]
